FAERS Safety Report 4628123-2 (Version None)
Quarter: 2005Q2

REPORT INFORMATION
  Report Type: 
  Country: None (occurrence: None)
  Receive Date: 20050406
  Receipt Date: 20050325
  Transmission Date: 20051028
  Serious: Yes (Life-Threatening)
  Sender: FDA-Public Use
  Company Number: FR-GLAXOSMITHKLINE-B0376167A

PATIENT
  Age: 58 Year
  Sex: Female

DRUGS (2)
  1. ALKERAN [Suspect]
     Indication: BONE MARROW TRANSPLANT
     Dosage: 325MG CYCLIC
     Route: 042
     Dates: start: 20050222, end: 20050222
  2. ZOPHREN [Suspect]
     Indication: PROPHYLAXIS OF NAUSEA AND VOMITING
     Dosage: 8MG CYCLIC
     Route: 042
     Dates: start: 20050222, end: 20050222

REACTIONS (9)
  - ABDOMINAL PAIN [None]
  - ANAPHYLACTIC SHOCK [None]
  - DEPRESSED LEVEL OF CONSCIOUSNESS [None]
  - FEELING COLD [None]
  - HYPOTENSION [None]
  - PRURITUS [None]
  - RASH [None]
  - SWELLING [None]
  - TONGUE OEDEMA [None]
